FAERS Safety Report 10468942 (Version 1)
Quarter: 2014Q3

REPORT INFORMATION
  Report Type: Spontaneous
  Country: FR (occurrence: FR)
  Receive Date: 20140923
  Receipt Date: 20140923
  Transmission Date: 20150326
  Serious: Yes (Hospitalization)
  Sender: FDA-Public Use
  Company Number: FR-UCBSA-2014012088

PATIENT
  Age: 37 Year
  Sex: Male

DRUGS (8)
  1. PREZISTA [Suspect]
     Active Substance: DARUNAVIR ETHANOLATE
     Indication: HIV INFECTION
     Dosage: 1200 MG/DAY
     Route: 048
     Dates: start: 20130108
  2. NORVIR [Suspect]
     Active Substance: RITONAVIR
     Indication: HIV INFECTION
     Dosage: 200 MG PER DAY
     Route: 048
     Dates: start: 20130108
  3. MALOCIDE [Suspect]
     Active Substance: PYRIMETHAMINE
     Indication: CEREBRAL TOXOPLASMOSIS
     Dosage: 1.5 TABLETS PER DAY
     Route: 048
     Dates: start: 20121229, end: 201301
  4. KEPPRA [Suspect]
     Active Substance: LEVETIRACETAM
     Indication: EPILEPSY
     Dosage: 2 G PER DAY
     Route: 048
     Dates: start: 20121229
  5. MALOCIDE [Suspect]
     Active Substance: PYRIMETHAMINE
     Dosage: 1.5 DF, 2X/DAY (BID)
     Route: 048
     Dates: start: 20130116, end: 20130201
  6. TRUVADA [Suspect]
     Active Substance: EMTRICITABINE\TENOFOVIR DISOPROXIL FUMARATE
     Indication: HIV INFECTION
     Dosage: ONE PER DAY, CONCENTRATION: 200/245 MG
     Route: 048
     Dates: start: 20130108, end: 201302
  7. ADIAZINE [Suspect]
     Active Substance: SULFADIAZINE
     Indication: CEREBRAL TOXOPLASMOSIS
     Dosage: 12 TABLETS/DAY
     Route: 048
     Dates: start: 20121229
  8. LEDERFOLINE [Concomitant]
     Active Substance: LEUCOVORIN CALCIUM
     Indication: SUPPLEMENTATION THERAPY
     Dosage: UNK

REACTIONS (2)
  - Neutropenia [Recovered/Resolved]
  - Thrombocytopenia [Unknown]

NARRATIVE: CASE EVENT DATE: 20130201
